FAERS Safety Report 9693541 (Version 5)
Quarter: 2016Q1

REPORT INFORMATION
  Report Type: Spontaneous
  Country: US (occurrence: US)
  Receive Date: 20131118
  Receipt Date: 20160329
  Transmission Date: 20160526
  Serious: Yes (Hospitalization, Other)
  Sender: FDA-Public Use
  Company Number: US-GLAXOSMITHKLINE-A1050060A

PATIENT
  Age: 65 Year
  Sex: Female

DRUGS (3)
  1. VENTOLIN [Suspect]
     Active Substance: ALBUTEROL SULFATE
     Indication: PRODUCT USED FOR UNKNOWN INDICATION
     Dosage: UNK UNK, U
     Dates: start: 20130812
  2. BREO ELLIPTA [Suspect]
     Active Substance: FLUTICASONE FUROATE\VILANTEROL TRIFENATATE
     Indication: CHRONIC OBSTRUCTIVE PULMONARY DISEASE
     Dosage: UNK
     Dates: start: 2014
  3. ADVAIR HFA [Suspect]
     Active Substance: FLUTICASONE PROPIONATE\SALMETEROL XINAFOATE
     Indication: PRODUCT USED FOR UNKNOWN INDICATION
     Dosage: UNK UNK, U
     Dates: start: 20130812

REACTIONS (3)
  - Adverse event [Unknown]
  - Bladder prolapse [Unknown]
  - Cardiac operation [Unknown]

NARRATIVE: CASE EVENT DATE: 20130902
